FAERS Safety Report 12287179 (Version 3)
Quarter: 2016Q3

REPORT INFORMATION
  Report Type: Spontaneous
  Country: BR (occurrence: BR)
  Receive Date: 20160420
  Receipt Date: 20160822
  Transmission Date: 20161109
  Serious: Yes (Other)
  Sender: FDA-Public Use
  Company Number: BR-JNJFOC-20151221089

PATIENT
  Age: 68 Year
  Sex: Female

DRUGS (7)
  1. REMICADE [Suspect]
     Active Substance: INFLIXIMAB
     Indication: RHEUMATOID ARTHRITIS
     Route: 042
     Dates: start: 20160715
  2. METHOTREXATE. [Concomitant]
     Active Substance: METHOTREXATE
     Route: 065
  3. REMICADE [Suspect]
     Active Substance: INFLIXIMAB
     Indication: RHEUMATOID ARTHRITIS
     Route: 042
  4. REMICADE [Suspect]
     Active Substance: INFLIXIMAB
     Indication: RHEUMATOID ARTHRITIS
     Route: 042
  5. REMICADE [Suspect]
     Active Substance: INFLIXIMAB
     Indication: RHEUMATOID ARTHRITIS
     Route: 042
     Dates: start: 201505
  6. MAREVAN [Concomitant]
     Active Substance: WARFARIN SODIUM
     Route: 065
  7. REMICADE [Suspect]
     Active Substance: INFLIXIMAB
     Indication: RHEUMATOID ARTHRITIS
     Route: 042
     Dates: start: 20151120

REACTIONS (17)
  - Off label use [Unknown]
  - Arthralgia [Unknown]
  - Hand deformity [Unknown]
  - Colitis [Unknown]
  - Tongue discolouration [Unknown]
  - Aphthous ulcer [Unknown]
  - Pain in extremity [Unknown]
  - Urinary tract infection [Unknown]
  - Cardiac operation [Unknown]
  - Pain [Recovering/Resolving]
  - Urticaria [Unknown]
  - Memory impairment [Unknown]
  - Product use issue [Unknown]
  - Neck mass [Unknown]
  - Infusion related reaction [Unknown]
  - Drug ineffective [Unknown]
  - Medication residue present [Unknown]

NARRATIVE: CASE EVENT DATE: 201505
